FAERS Safety Report 25041318 (Version 1)
Quarter: 2025Q1

REPORT INFORMATION
  Report Type: Report from Study
  Country: GB (occurrence: GB)
  Receive Date: 20250305
  Receipt Date: 20250305
  Transmission Date: 20250409
  Serious: Yes (Hospitalization)
  Sender: ROCHE
  Company Number: GB-ROCHE-10000165200

PATIENT
  Age: 19 Year
  Sex: Male

DRUGS (1)
  1. TOCILIZUMAB [Suspect]
     Active Substance: TOCILIZUMAB
     Indication: Takayasu^s arteritis
     Route: 058
     Dates: start: 20250120

REACTIONS (10)
  - Off label use [Unknown]
  - Nasopharyngitis [Unknown]
  - Infection [Unknown]
  - Nasopharyngitis [Unknown]
  - Productive cough [Unknown]
  - Malaise [Unknown]
  - Device malfunction [Unknown]
  - Device use error [Unknown]
  - Anxiety [Unknown]
  - Infection [Unknown]
